FAERS Safety Report 4715620-4 (Version None)
Quarter: 2005Q3

REPORT INFORMATION
  Report Type: 
  Country: None (occurrence: None)
  Receive Date: 20050713
  Receipt Date: 20050705
  Transmission Date: 20060218
  Serious: Yes (Other)
  Sender: FDA-Public Use
  Company Number: 2005-07-0128

PATIENT
  Age: 46 Year
  Sex: Male

DRUGS (2)
  1. TEMOZOLOMIDE CAPSULES (LIKE TEMODAR) [Suspect]
     Indication: GLIOBLASTOMA
     Dates: start: 20050905
  2. CO-TRIMOXAZOLE [Concomitant]

REACTIONS (3)
  - DISEASE PROGRESSION [None]
  - PNEUMONIA PRIMARY ATYPICAL [None]
  - PNEUMONITIS [None]
